FAERS Safety Report 7349103-2 (Version None)
Quarter: 2011Q1

REPORT INFORMATION
  Report Type: 
  Country: None (occurrence: None)
  Receive Date: 20110314
  Receipt Date: 20110303
  Transmission Date: 20110831
  Serious: Yes (Hospitalization)
  Sender: FDA-Public Use
  Company Number: US-CELGENEUS-163-21880-11010681

PATIENT
  Sex: Male

DRUGS (7)
  1. REVLIMID [Suspect]
     Indication: MULTIPLE MYELOMA
     Dosage: 10 MILLIGRAM
     Route: 048
     Dates: start: 20101215
  2. ISOSORBIDE DINITRATE [Concomitant]
     Dosage: 30 MILLIGRAM
     Route: 065
  3. ZOMETA [Concomitant]
     Route: 065
  4. NIFEDIPINE [Concomitant]
     Dosage: 30 MILLIGRAM
     Route: 065
  5. LIPITOR [Concomitant]
     Dosage: 20 MILLIGRAM
     Route: 065
  6. PRILOSEC [Concomitant]
     Route: 065
  7. ASPIRIN [Concomitant]
     Dosage: 81 MILLIGRAM
     Route: 065

REACTIONS (2)
  - LETHARGY [None]
  - ABASIA [None]
